FAERS Safety Report 22612152 (Version 1)
Quarter: 2023Q2

REPORT INFORMATION
  Report Type: Spontaneous
  Country: US (occurrence: US)
  Receive Date: 20230617
  Receipt Date: 20230617
  Transmission Date: 20230722
  Serious: No
  Sender: FDA-Public Use
  Company Number: US-ABBVIE-5294518

PATIENT
  Sex: Female

DRUGS (2)
  1. BOTOX [Suspect]
     Active Substance: ONABOTULINUMTOXINA
     Indication: Congenital hypoplasia of depressor angularis oris muscle
     Dosage: TIME INTERVAL: AS NECESSARY
     Route: 065
     Dates: start: 202010, end: 202010
  2. BOTOX [Suspect]
     Active Substance: ONABOTULINUMTOXINA
     Indication: Congenital hypoplasia of depressor angularis oris muscle
     Dosage: TIME INTERVAL: AS NECESSARY: DEPRESSOR ANGULI ORIS MUSCLE
     Route: 065
     Dates: start: 20230601, end: 20230601

REACTIONS (2)
  - Hypoaesthesia oral [Unknown]
  - Off label use [Unknown]
